FAERS Safety Report 4540386-0 (Version None)
Quarter: 2004Q4

REPORT INFORMATION
  Report Type: 
  Country: None (occurrence: None)
  Receive Date: 20041222
  Receipt Date: 20041207
  Transmission Date: 20050328
  Serious: Yes (Other)
  Sender: FDA-Public Use
  Company Number: DE_041214865

PATIENT
  Sex: Female

DRUGS (1)
  1. PARKOTI L  (PERGOLIDE MESYLATE) [Suspect]
     Indication: RESTLESS LEGS SYNDROME
     Dates: start: 20020801

REACTIONS (1)
  - MITRAL VALVE DISEASE [None]
